FAERS Safety Report 25683626 (Version 2)
Quarter: 2025Q4

REPORT INFORMATION
  Report Type: Spontaneous
  Country: US (occurrence: US)
  Receive Date: 20250814
  Receipt Date: 20251117
  Transmission Date: 20260118
  Serious: No
  Sender: SANOFI AVENTIS
  Company Number: US-SA-2025SA238177

PATIENT
  Age: 76 Year
  Sex: Male

DRUGS (1)
  1. DUPIXENT [Suspect]
     Active Substance: DUPILUMAB
     Indication: Chronic obstructive pulmonary disease
     Dosage: 300MG QOW
     Route: 058

REACTIONS (5)
  - Dyspnoea [Unknown]
  - Loss of personal independence in daily activities [Unknown]
  - Nasopharyngitis [Unknown]
  - Cough [Unknown]
  - Productive cough [Unknown]
